FAERS Safety Report 4722103-4 (Version None)
Quarter: 2005Q3

REPORT INFORMATION
  Report Type: 
  Country: None (occurrence: None)
  Receive Date: 20050722
  Receipt Date: 20050603
  Transmission Date: 20060218
  Serious: Yes (Other)
  Sender: FDA-Public Use
  Company Number: CH-BRISTOL-MYERS SQUIBB COMPANY-12999132

PATIENT
  Age: 72 Year
  Sex: Female

DRUGS (6)
  1. GLUCOPHAGE [Suspect]
     Indication: DIABETES MELLITUS NON-INSULIN-DEPENDENT
     Route: 048
  2. CO-EPRIL [Suspect]
     Indication: ESSENTIAL HYPERTENSION
     Dates: end: 20050520
  3. ASPIRIN [Suspect]
     Route: 048
  4. PANTOPRAZOLE SODIUM [Suspect]
     Route: 048
     Dates: end: 20050520
  5. CALCIMAGON-D3 [Concomitant]
     Route: 048
  6. ELTROXIN [Concomitant]
     Route: 048

REACTIONS (2)
  - HEPATOCELLULAR DAMAGE [None]
  - JAUNDICE HEPATOCELLULAR [None]
